FAERS Safety Report 9878796 (Version 2)
Quarter: 2014Q1

REPORT INFORMATION
  Report Type: Spontaneous
  Country: US (occurrence: US)
  Receive Date: 20140206
  Receipt Date: 20140206
  Transmission Date: 20141002
  Serious: No
  Sender: FDA-Public Use
  Company Number: US-ALLERGAN-1308931US

PATIENT
  Sex: Female

DRUGS (13)
  1. BOTOX [Suspect]
     Indication: MIGRAINE
     Dosage: 105 UNITS, SINGLE
     Dates: start: 20130617, end: 20130617
  2. BOTOX [Suspect]
     Dosage: 155 UNITS, SINGLE
     Dates: start: 20130319, end: 20130319
  3. TOPAMAX [Concomitant]
     Indication: MIGRAINE
     Dosage: UNK UNK, PRN
  4. METOPROLOL [Concomitant]
     Indication: HYPERTENSION
     Dosage: UNK UNK, BID
  5. SAVELLA [Concomitant]
     Indication: ANXIETY
     Dosage: 50 MG, BID
  6. MONTELUKAST [Concomitant]
     Indication: SLEEP APNOEA SYNDROME
     Dosage: 10 MG, QD
  7. PHENAZOPYRIDINE [Concomitant]
     Indication: PRODUCT USED FOR UNKNOWN INDICATION
     Dosage: 100 MG, QD
  8. ESCITALOPRAM OXALATE [Concomitant]
     Indication: ANXIETY
     Dosage: 10 MG, QD
  9. HYDROCHLOROTHIAZIDE [Concomitant]
     Indication: HYPERTENSION
     Dosage: 125 MG, QD
     Route: 048
  10. NORTRIPTYLINE [Concomitant]
     Indication: ANXIETY
     Dosage: 25 MG, QD
     Route: 048
  11. SIMVASTATIN [Concomitant]
     Indication: BLOOD CHOLESTEROL INCREASED
     Dosage: 40 MG, QD
  12. FELODIPINE ER [Concomitant]
     Indication: HYPERTENSION
     Dosage: 5 MG, QD
  13. CLONIDINE HCL [Concomitant]
     Indication: ANXIETY
     Dosage: 0.1 MG, TID TO PRN

REACTIONS (1)
  - Urinary incontinence [Recovered/Resolved]
